FAERS Safety Report 16019448 (Version 6)
Quarter: 2019Q4

REPORT INFORMATION
  Report Type: Report from Study
  Country: US (occurrence: US)
  Receive Date: 20190228
  Receipt Date: 20191213
  Transmission Date: 20200122
  Serious: Yes (Other)
  Sender: FDA-Public Use
  Company Number: PHEH2019US008649

PATIENT
  Age: 39 Year
  Sex: Female
  Weight: 53.1 kg

DRUGS (1)
  1. GILENYA [Suspect]
     Active Substance: FINGOLIMOD HYDROCHLORIDE
     Indication: MULTIPLE SCLEROSIS
     Dosage: 0.5 MG, QD
     Route: 048
     Dates: start: 20181016

REACTIONS (6)
  - Vertigo [Recovered/Resolved]
  - Multiple sclerosis relapse [Unknown]
  - Insomnia [Unknown]
  - Hypoaesthesia [Recovered/Resolved]
  - Psychomotor hyperactivity [Unknown]
  - Fatigue [Unknown]

NARRATIVE: CASE EVENT DATE: 20181104
